APPROVED DRUG PRODUCT: ZOVIRAX
Active Ingredient: ACYCLOVIR
Strength: 5%
Dosage Form/Route: OINTMENT;TOPICAL
Application: N018604 | Product #001 | TE Code: AB
Applicant: BAUSCH HEALTH US LLC
Approved: Mar 29, 1982 | RLD: Yes | RS: Yes | Type: RX